FAERS Safety Report 9868163 (Version 6)
Quarter: 2014Q2

REPORT INFORMATION
  Report Type: Report from Study
  Country: US (occurrence: US)
  Receive Date: 20140204
  Receipt Date: 20140521
  Transmission Date: 20141212
  Serious: Yes (Hospitalization, Other)
  Sender: FDA-Public Use
  Company Number: PHEH2013US026532

PATIENT
  Sex: Female
  Weight: 58.96 kg

DRUGS (1)
  1. TOBI [Suspect]
     Indication: BRONCHIECTASIS
     Dosage: 300 MG, BID
     Route: 055

REACTIONS (6)
  - Pneumonia [Not Recovered/Not Resolved]
  - Bronchitis [Recovered/Resolved]
  - Bronchial hyperreactivity [Recovered/Resolved]
  - Pneumonia pseudomonal [Recovered/Resolved]
  - Viral infection [Recovered/Resolved]
  - Malaise [Recovered/Resolved]
